FAERS Safety Report 10159573 (Version 1)
Quarter: 2014Q2

REPORT INFORMATION
  Report Type: Spontaneous
  Country: US (occurrence: None)
  Receive Date: 20140506
  Receipt Date: 20140506
  Transmission Date: 20141212
  Serious: Yes (Death)
  Sender: FDA-Public Use
  Company Number: US14-72

PATIENT
  Sex: Female

DRUGS (1)
  1. DICLEGIS [Suspect]
     Route: 048

REACTIONS (2)
  - Maternal exposure during pregnancy [None]
  - Foetal death [None]
